FAERS Safety Report 5938693-X (Version None)
Quarter: 2008Q4

REPORT INFORMATION
  Report Type: 
  Country: None (occurrence: None)
  Receive Date: 20081103
  Receipt Date: 20081029
  Transmission Date: 20090506
  Serious: Yes (Hospitalization)
  Sender: FDA-Public Use
  Company Number: JP-MERCK-0810USA00683

PATIENT
  Age: 72 Year
  Sex: Male

DRUGS (3)
  1. HYZAAR [Suspect]
     Indication: BLOOD PRESSURE INCREASED
     Route: 048
     Dates: start: 20080822, end: 20080912
  2. ADALAT [Concomitant]
     Indication: BLOOD PRESSURE INCREASED
     Route: 048
  3. NORVASC [Concomitant]
     Indication: BLOOD PRESSURE INCREASED
     Route: 048
     Dates: start: 20080616

REACTIONS (6)
  - ALTERED STATE OF CONSCIOUSNESS [None]
  - HYPOKALAEMIA [None]
  - HYPONATRAEMIA [None]
  - INAPPROPRIATE ANTIDIURETIC HORMONE SECRETION [None]
  - THIRST [None]
  - TINNITUS [None]
